FAERS Safety Report 8192196-3 (Version None)
Quarter: 2012Q1

REPORT INFORMATION
  Report Type: 
  Country: None (occurrence: None)
  Receive Date: 20120307
  Receipt Date: 20120223
  Transmission Date: 20120608
  Serious: Yes (Other)
  Sender: FDA-Public Use
  Company Number: CH-ELI_LILLY_AND_COMPANY-CH201202007600

PATIENT
  Age: 28 Year
  Sex: Female

DRUGS (2)
  1. CYMBALTA [Suspect]
     Indication: GENERALISED ANXIETY DISORDER
     Dosage: 60 MG, QD
     Route: 048
     Dates: start: 20110701, end: 20120101
  2. DALMADORM [Concomitant]
     Indication: SLEEP DISORDER
     Dosage: 15 MG, EACH EVENING
     Route: 048
     Dates: end: 20120101

REACTIONS (1)
  - MATERNAL EXPOSURE DURING PREGNANCY [None]
